FAERS Safety Report 11918830 (Version 1)
Quarter: 2016Q1

REPORT INFORMATION
  Report Type: Spontaneous
  Country: US (occurrence: None)
  Receive Date: 20160114
  Receipt Date: 20160114
  Transmission Date: 20160526
  Serious: No
  Sender: FDA-Public Use
  Company Number: None

PATIENT
  Age: 58 Year
  Sex: Male
  Weight: 81.19 kg

DRUGS (2)
  1. RISPERIDONE WALMART - PHARMACY [Suspect]
     Active Substance: RISPERIDONE
     Indication: DEPRESSION
     Route: 048
     Dates: start: 20151221, end: 20151228
  2. ESCITALOPRAM [Suspect]
     Active Substance: ESCITALOPRAM OXALATE

REACTIONS (7)
  - Presyncope [None]
  - Chest discomfort [None]
  - Tremor [None]
  - Feeling abnormal [None]
  - Speech disorder [None]
  - Dizziness [None]
  - Respiratory rate increased [None]

NARRATIVE: CASE EVENT DATE: 20151021
